FAERS Safety Report 9305352 (Version 5)
Quarter: 2014Q4

REPORT INFORMATION
  Report Type: Spontaneous
  Country: JP (occurrence: JP)
  Receive Date: 20130523
  Receipt Date: 20141121
  Transmission Date: 20150529
  Serious: Yes (Hospitalization, Other)
  Sender: FDA-Public Use
  Company Number: JP-PFIZER INC-2013157282

PATIENT
  Age: 70 Year
  Sex: Female
  Weight: 67.5 kg

DRUGS (11)
  1. LYRICA [Suspect]
     Active Substance: PREGABALIN
     Dosage: 150 MG, 2X/DAY
     Route: 048
     Dates: start: 20130423, end: 20130424
  2. EXFORGE [Concomitant]
     Active Substance: AMLODIPINE BESYLATE\VALSARTAN
     Indication: ESSENTIAL HYPERTENSION
     Dosage: UNK
     Route: 048
     Dates: start: 20121106, end: 20130424
  3. METHYCOBAL [Concomitant]
     Active Substance: METHYLCOBALAMIN
     Indication: INTERCOSTAL NEURALGIA
     Dosage: 500 UG, 3X/DAY
     Route: 048
     Dates: start: 20130420, end: 20130424
  4. LANSOPRAZOLE. [Concomitant]
     Active Substance: LANSOPRAZOLE
     Indication: GASTRITIS
     Dosage: 10 MG, 1X/DAY
     Route: 048
     Dates: start: 20130423, end: 20130424
  5. SALSOLON [Concomitant]
     Indication: INTERCOSTAL NEURALGIA
     Dosage: UNK
     Route: 042
     Dates: start: 20130416, end: 20130423
  6. ATORVASTATIN [Concomitant]
     Active Substance: ATORVASTATIN
     Indication: HYPERLIPIDAEMIA
     Dosage: 10 MG, 1X/DAY
     Route: 048
     Dates: start: 20121106, end: 20130424
  7. SURGAM [Concomitant]
     Active Substance: TIAPROFENIC ACID
     Indication: INTERCOSTAL NEURALGIA
     Dosage: 200 MG, 3X/DAY
     Route: 048
     Dates: start: 20130420, end: 20130423
  8. LYRICA [Suspect]
     Active Substance: PREGABALIN
     Indication: INTERCOSTAL NEURALGIA
     Dosage: 75 MG, 2X/DAY
     Route: 048
     Dates: start: 20130420, end: 20130423
  9. ZETIA [Concomitant]
     Active Substance: EZETIMIBE
     Indication: HYPERLIPIDAEMIA
     Dosage: 10 MG, 1X/DAY
     Route: 048
     Dates: start: 20121106, end: 20130424
  10. NESINA [Concomitant]
     Active Substance: ALOGLIPTIN BENZOATE
     Indication: TYPE 2 DIABETES MELLITUS
     Dosage: 6.25 MG, 1X/DAY
     Route: 048
     Dates: start: 20121106, end: 20130424
  11. REBAMIPIDE [Concomitant]
     Active Substance: REBAMIPIDE
     Indication: INTERCOSTAL NEURALGIA
     Dosage: 100 MG, 3X/DAY
     Route: 048
     Dates: start: 20130420, end: 20130424

REACTIONS (2)
  - Circulatory collapse [Recovered/Resolved]
  - Drug-induced liver injury [Recovered/Resolved]

NARRATIVE: CASE EVENT DATE: 20130425
